FAERS Safety Report 8990268 (Version 1)
Quarter: 2012Q4

REPORT INFORMATION
  Report Type: 
  Country: TR (occurrence: TR)
  Receive Date: 20121228
  Receipt Date: 20121228
  Transmission Date: 20130627
  Serious: Yes (Other)
  Sender: FDA-Public Use
  Company Number: TR-NOVOPROD-349195

PATIENT
  Age: 35 Year
  Sex: Female
  Weight: 71 kg

DRUGS (2)
  1. NOVORAPID FLEXPEN [Suspect]
     Indication: GESTATIONAL DIABETES
     Dosage: 16 U, qd
     Route: 058
     Dates: start: 20120404, end: 20120424
  2. LEVOTIRON [Concomitant]
     Dosage: 1/2, qd
     Route: 048
     Dates: start: 201103

REACTIONS (2)
  - Foetal death [Unknown]
  - Exposure during pregnancy [Unknown]
